FAERS Safety Report 4301837-X (Version None)
Quarter: 2004Q1

REPORT INFORMATION
  Report Type: 
  Country: None (occurrence: None)
  Receive Date: 20040223
  Receipt Date: 20031218
  Transmission Date: 20041129
  Serious: Yes (Death)
  Sender: FDA-Public Use
  Company Number: US-GLAXOSMITHKLINE-A0443651A

PATIENT
  Age: 51 Year
  Sex: Male

DRUGS (4)
  1. WELLBUTRIN [Suspect]
     Indication: DEPRESSION
     Dosage: 150MG TWICE PER DAY
     Route: 048
     Dates: start: 20010101
  2. MULTIVITAMIN [Concomitant]
  3. CALCIUM [Concomitant]
  4. ADVIL [Concomitant]

REACTIONS (3)
  - COMPLETED SUICIDE [None]
  - MUSCLE TWITCHING [None]
  - PHARMACEUTICAL PRODUCT COMPLAINT [None]
